FAERS Safety Report 10067177 (Version 3)
Quarter: 2014Q3

REPORT INFORMATION
  Report Type: Spontaneous
  Country: JP (occurrence: None)
  Receive Date: 20140407
  Receipt Date: 20140915
  Transmission Date: 20150326
  Serious: Yes (Death)
  Sender: FDA-Public Use
  Company Number: SP07666

PATIENT
  Age: 83 Year
  Sex: Male

DRUGS (14)
  1. MOVIPREP [Suspect]
     Active Substance: ASCORBIC ACID\POLYETHYLENE GLYCOL 3350\POTASSIUM CHLORIDE\SODIUM ASCORBATE\SODIUM CHLORIDE\SODIUM SULFATE
     Indication: BOWEL PREPARATION
     Dosage: (2 LIT), ORAL
     Route: 048
     Dates: start: 20140319, end: 20140319
  2. LAXOBERON [Concomitant]
     Active Substance: SODIUM PICOSULFATE
  3. MAGLAX [Concomitant]
     Active Substance: MAGNESIUM OXIDE
  4. AMLODIN [Concomitant]
     Active Substance: AMLODIPINE BESYLATE
  5. WARFARIN [Concomitant]
     Active Substance: WARFARIN
  6. PARIET [Concomitant]
     Active Substance: RABEPRAZOLE SODIUM
  7. MAGNESIUM SULFATE [Concomitant]
     Active Substance: MAGNESIUM SULFATE
  8. NEUROTROPIN [Concomitant]
     Active Substance: NEUROTROPIN
  9. ITOROL [Concomitant]
     Active Substance: ISOSORBIDE MONONITRATE
  10. TRAMCET [Concomitant]
     Active Substance: ACETAMINOPHEN\TRAMADOL
  11. LYRICA [Concomitant]
     Active Substance: PREGABALIN
  12. DOMPERIDONE [Concomitant]
     Active Substance: DOMPERIDONE
  13. BAYASPIRIN [Concomitant]
     Active Substance: ASPIRIN
  14. MYONAL [Concomitant]
     Active Substance: EPERISONE HYDROCHLORIDE

REACTIONS (16)
  - Respiratory failure [None]
  - Aspiration [None]
  - Ileus [None]
  - Respiratory arrest [None]
  - Pulse absent [None]
  - Dyspnoea [None]
  - Asphyxia [None]
  - Pulmonary oedema [None]
  - Immobile [None]
  - Anal haemorrhage [None]
  - Pupillary reflex impaired [None]
  - Unresponsive to stimuli [None]
  - Vomiting [None]
  - Inappropriate schedule of drug administration [None]
  - Loss of consciousness [None]
  - Cardiac arrest [None]

NARRATIVE: CASE EVENT DATE: 20140319
